FAERS Safety Report 18952051 (Version 6)
Quarter: 2022Q1

REPORT INFORMATION
  Report Type: Other
  Country: LT (occurrence: LT)
  Receive Date: 20210301
  Receipt Date: 20220121
  Transmission Date: 20220423
  Serious: Yes (Life-Threatening, Hospitalization)
  Sender: FDA-Public Use
  Company Number: LT-002147023-NVSC2021LT023202

PATIENT
  Age: 17 Year
  Sex: Male

DRUGS (31)
  1. SULFAMETHOXAZOLE\TRIMETHOPRIM [Suspect]
     Active Substance: SULFAMETHOXAZOLE\TRIMETHOPRIM
     Indication: Antifungal prophylaxis
     Dosage: 400/80 MG
     Route: 048
     Dates: end: 201909
  2. SULFAMETHOXAZOLE\TRIMETHOPRIM [Suspect]
     Active Substance: SULFAMETHOXAZOLE\TRIMETHOPRIM
     Route: 048
  3. SULFAMETHOXAZOLE\TRIMETHOPRIM [Suspect]
     Active Substance: SULFAMETHOXAZOLE\TRIMETHOPRIM
     Route: 042
     Dates: start: 202006
  4. TACROLIMUS [Suspect]
     Active Substance: TACROLIMUS
     Indication: Immunosuppressant drug therapy
     Route: 048
  5. TACROLIMUS [Suspect]
     Active Substance: TACROLIMUS
     Indication: Renal transplant
     Route: 048
  6. TACROLIMUS [Suspect]
     Active Substance: TACROLIMUS
     Indication: Immunosuppression
     Route: 065
  7. TACROLIMUS [Suspect]
     Active Substance: TACROLIMUS
     Route: 048
  8. FOLIC ACID [Suspect]
     Active Substance: FOLIC ACID
     Indication: Anaemia
     Route: 065
  9. MYCOPHENOLATE MOFETIL [Suspect]
     Active Substance: MYCOPHENOLATE MOFETIL
     Indication: Renal transplant
     Route: 065
     Dates: start: 202006
  10. MYCOPHENOLATE MOFETIL [Suspect]
     Active Substance: MYCOPHENOLATE MOFETIL
     Indication: Immunosuppressant drug therapy
     Dosage: 500 MG, BID (Q12H)
     Route: 048
  11. MYCOPHENOLATE MOFETIL [Suspect]
     Active Substance: MYCOPHENOLATE MOFETIL
     Indication: Immunosuppression
     Dosage: 750 MG, BID (Q12H)
     Route: 048
  12. MYCOPHENOLATE MOFETIL [Suspect]
     Active Substance: MYCOPHENOLATE MOFETIL
     Route: 048
  13. MYCOPHENOLATE MOFETIL [Suspect]
     Active Substance: MYCOPHENOLATE MOFETIL
     Route: 048
  14. MYCOPHENOLATE MOFETIL [Suspect]
     Active Substance: MYCOPHENOLATE MOFETIL
     Route: 048
  15. MYCOPHENOLATE MOFETIL [Suspect]
     Active Substance: MYCOPHENOLATE MOFETIL
     Route: 065
     Dates: start: 202006
  16. BASILIXIMAB [Suspect]
     Active Substance: BASILIXIMAB
     Indication: Renal transplant
     Route: 042
  17. BASILIXIMAB [Suspect]
     Active Substance: BASILIXIMAB
     Indication: Immunosuppressant drug therapy
  18. BASILIXIMAB [Suspect]
     Active Substance: BASILIXIMAB
     Indication: Immunosuppression
  19. VALGANCICLOVIR [Suspect]
     Active Substance: VALGANCICLOVIR
     Indication: Antiviral prophylaxis
     Dosage: INCREASED UP TO 450 MG TWICE DAILY, FOR 2 WEEKS
     Route: 048
     Dates: end: 201912
  20. VALGANCICLOVIR [Suspect]
     Active Substance: VALGANCICLOVIR
     Indication: Onychomycosis
     Dosage: INCREASED UP TO 450 MG TWICE DAILY, FOR 2 WEEKS
     Route: 048
     Dates: end: 201912
  21. VALGANCICLOVIR [Suspect]
     Active Substance: VALGANCICLOVIR
     Route: 048
  22. VALGANCICLOVIR [Suspect]
     Active Substance: VALGANCICLOVIR
     Route: 048
  23. METHYLPREDNISOLONE [Suspect]
     Active Substance: METHYLPREDNISOLONE
     Indication: Renal transplant
     Route: 042
  24. METHYLPREDNISOLONE [Suspect]
     Active Substance: METHYLPREDNISOLONE
     Indication: Immunosuppressant drug therapy
     Route: 048
  25. METHYLPREDNISOLONE [Suspect]
     Active Substance: METHYLPREDNISOLONE
     Indication: Immunosuppression
     Route: 048
  26. DARBEPOETIN ALFA [Suspect]
     Active Substance: DARBEPOETIN ALFA
     Indication: Anaemia
     Route: 058
  27. SULFAMETHOXAZOLE\TRIMETHOPRIM [Suspect]
     Active Substance: SULFAMETHOXAZOLE\TRIMETHOPRIM
     Indication: Antifungal prophylaxis
     Route: 042
     Dates: start: 202006
  28. SULFAMETHOXAZOLE\TRIMETHOPRIM [Suspect]
     Active Substance: SULFAMETHOXAZOLE\TRIMETHOPRIM
     Dosage: 80/400 MG
     Route: 048
     Dates: end: 201909
  29. SULFAMETHOXAZOLE\TRIMETHOPRIM [Suspect]
     Active Substance: SULFAMETHOXAZOLE\TRIMETHOPRIM
     Route: 048
  30. TERBINAFINE [Concomitant]
     Active Substance: TERBINAFINE
     Indication: Onychomycosis
     Route: 061
  31. NAFTIFINE [Concomitant]
     Active Substance: NAFTIFINE
     Indication: Onychomycosis
     Route: 061

REACTIONS (7)
  - Epstein-Barr virus infection [Recovered/Resolved]
  - Renal impairment [Recovering/Resolving]
  - Skin lesion [Recovering/Resolving]
  - Hypogammaglobulinaemia [Unknown]
  - Onychomycosis [Recovering/Resolving]
  - Pneumocystis jirovecii pneumonia [Recovered/Resolved]
  - Cytomegalovirus viraemia [Recovered/Resolved]
